FAERS Safety Report 10787066 (Version 1)
Quarter: 2015Q1

REPORT INFORMATION
  Report Type: Spontaneous
  Country: US (occurrence: US)
  Receive Date: 20150211
  Receipt Date: 20150211
  Transmission Date: 20150721
  Serious: No
  Sender: FDA-Public Use
  Company Number: US-GLAXOSMITHKLINE-US2014039485

PATIENT
  Age: 82 Year
  Sex: Male

DRUGS (1)
  1. BREO ELLIPTA [Suspect]
     Active Substance: FLUTICASONE FUROATE\VILANTEROL TRIFENATATE
     Indication: RESPIRATORY DISORDER
     Route: 055
     Dates: start: 201411, end: 201412

REACTIONS (4)
  - Candida infection [Unknown]
  - Decreased activity [Unknown]
  - Insomnia [Unknown]
  - Hypophagia [Unknown]

NARRATIVE: CASE EVENT DATE: 201412
